FAERS Safety Report 9352483 (Version 2)
Quarter: 2013Q4

REPORT INFORMATION
  Report Type: Spontaneous
  Country: US (occurrence: US)
  Receive Date: 20130617
  Receipt Date: 20131127
  Transmission Date: 20140711
  Serious: Yes (Hospitalization)
  Sender: FDA-Public Use
  Company Number: US-B.I. PHARMACEUTICALS,INC./RIDGEFIELD-2013-BI-16741BP

PATIENT
  Sex: Male
  Weight: 115.21 kg

DRUGS (18)
  1. PRADAXA [Suspect]
     Indication: ATRIAL FIBRILLATION
     Dosage: 300 MG
     Route: 048
     Dates: start: 20110326
  2. ALBUTEROL [Concomitant]
     Dosage: 8 PUF
     Route: 055
     Dates: start: 2000
  3. AMIODARONE [Concomitant]
     Dosage: 200 MG
     Route: 048
     Dates: start: 2008
  4. ASCORBIC ACID [Concomitant]
     Dosage: 500 MG
     Route: 048
  5. ASPIRIN [Concomitant]
     Dosage: 81 MG
     Route: 048
     Dates: start: 2008
  6. CAPSAICIN [Concomitant]
     Route: 061
  7. COLACE [Concomitant]
     Dosage: 200 MG
     Route: 048
  8. DUONEB [Concomitant]
     Dosage: 12 ML
     Route: 055
     Dates: start: 2000
  9. FINASTERIDE [Concomitant]
     Dosage: 5 MG
     Route: 048
     Dates: start: 2008
  10. INSULIN ASPART [Concomitant]
     Route: 058
     Dates: start: 2000
  11. LANTUS [Concomitant]
     Route: 058
     Dates: start: 2000
  12. LASIX [Concomitant]
     Dosage: 80 MG
     Route: 048
     Dates: start: 2008
  13. OMEPRAZOLE [Concomitant]
     Dosage: 20 MG
     Route: 048
  14. SYNTHROID [Concomitant]
     Dosage: 0.175 MG
     Route: 048
     Dates: start: 2008
  15. THERAGRAN [Concomitant]
     Route: 048
  16. TOPROL XL [Concomitant]
     Dosage: 100 MG
     Route: 048
     Dates: start: 2008
  17. ZESTRIL [Concomitant]
     Dosage: 2.5 MG
     Route: 048
     Dates: start: 2008
  18. ZOCOR [Concomitant]
     Dosage: 40 MG
     Route: 048
     Dates: start: 2008

REACTIONS (4)
  - Gastrointestinal haemorrhage [Unknown]
  - Haemorrhagic anaemia [Unknown]
  - Coagulopathy [Unknown]
  - Haemoptysis [Unknown]
